FAERS Safety Report 7041576-8 (Version None)
Quarter: 2010Q4

REPORT INFORMATION
  Report Type: 
  Country: None (occurrence: None)
  Receive Date: 20101013
  Receipt Date: 20091014
  Transmission Date: 20110411
  Serious: Yes (Other)
  Sender: FDA-Public Use
  Company Number: PT-ASTRAZENECA-2009SE20175

PATIENT

DRUGS (1)
  1. SYMBICORT [Suspect]
     Dosage: 164.5
     Route: 055

REACTIONS (1)
  - BRONCHOSPASM PARADOXICAL [None]
